FAERS Safety Report 13708641 (Version 14)
Quarter: 2020Q3

REPORT INFORMATION
  Report Type: Spontaneous
  Country: US (occurrence: US)
  Receive Date: 20170630
  Receipt Date: 20200822
  Transmission Date: 20201102
  Serious: Yes (Hospitalization)
  Sender: FDA-Public Use
  Company Number: US-ACTELION-A-NJ2017-155060

PATIENT
  Age: 62 Year
  Sex: Female
  Weight: 78.46 kg

DRUGS (10)
  1. OPSUMIT [Suspect]
     Active Substance: MACITENTAN
     Indication: PULMONARY ARTERIAL HYPERTENSION
     Dosage: 10 MG, QD
     Route: 048
     Dates: start: 20170525
  2. UPTRAVI [Suspect]
     Active Substance: SELEXIPAG
     Dosage: 800 MCG IN AM, 200 MCG IN PM
     Route: 048
     Dates: start: 20200712
  3. REVATIO [Concomitant]
     Active Substance: SILDENAFIL CITRATE
  4. UPTRAVI [Suspect]
     Active Substance: SELEXIPAG
     Dosage: 200 MCG, BID
     Route: 048
  5. UPTRAVI [Suspect]
     Active Substance: SELEXIPAG
     Dosage: 800 MCG, BID
     Route: 048
     Dates: start: 20200716
  6. LASIX [Concomitant]
     Active Substance: FUROSEMIDE
  7. UPTRAVI [Suspect]
     Active Substance: SELEXIPAG
     Dosage: 800 MCG, BID
     Route: 048
  8. OPSUMIT [Suspect]
     Active Substance: MACITENTAN
     Dosage: 10 MG, QD
     Route: 048
  9. ELIQUIS [Concomitant]
     Active Substance: APIXABAN
  10. UPTRAVI [Suspect]
     Active Substance: SELEXIPAG
     Indication: PULMONARY ARTERIAL HYPERTENSION
     Dosage: 1000 MCG, BID
     Route: 048
     Dates: start: 20200715

REACTIONS (25)
  - Oedema [Unknown]
  - Fall [Unknown]
  - Nausea [Unknown]
  - Pain in jaw [Unknown]
  - Cough [Unknown]
  - Urinary tract infection [Unknown]
  - Hypotension [Unknown]
  - Nasal congestion [Unknown]
  - Arthralgia [Unknown]
  - Diarrhoea [Unknown]
  - Dyspnoea [Unknown]
  - Weight increased [Unknown]
  - Myalgia [Unknown]
  - Inflammation [Unknown]
  - Syncope [Unknown]
  - Nasopharyngitis [Unknown]
  - Productive cough [Unknown]
  - Hospitalisation [Unknown]
  - Autoimmune disorder [Unknown]
  - Hypertension [Not Recovered/Not Resolved]
  - Dizziness [Unknown]
  - Cardiac disorder [Unknown]
  - Migraine [Unknown]
  - Pathological fracture [Unknown]
  - Headache [Unknown]

NARRATIVE: CASE EVENT DATE: 2017
